FAERS Safety Report 8459739-3 (Version None)
Quarter: 2012Q2

REPORT INFORMATION
  Report Type: 
  Country: None (occurrence: None)
  Receive Date: 20120622
  Receipt Date: 20120613
  Transmission Date: 20120825
  Serious: Yes (Hospitalization)
  Sender: FDA-Public Use
  Company Number: SE-MERCK-1206USA02061

PATIENT
  Age: 80 Year
  Sex: Female

DRUGS (9)
  1. KALCIPOS D [Concomitant]
     Route: 065
  2. PLENDIL [Concomitant]
     Route: 065
  3. SINGULAIR [Concomitant]
     Route: 065
  4. VOLTAREN [Concomitant]
     Route: 065
  5. ACETYLCYSTEINE [Concomitant]
     Route: 065
  6. MOLLIPECT [Concomitant]
     Route: 065
  7. ATENOLOL [Concomitant]
     Route: 065
  8. ZOLEDRONOC ACID [Suspect]
     Indication: OSTEOPOROSIS
     Route: 041
     Dates: start: 20090101, end: 20090101
  9. FOSAMAX [Suspect]
     Indication: OSTEOPOROSIS
     Route: 048
     Dates: start: 20010101, end: 20090101

REACTIONS (1)
  - PATHOLOGICAL FRACTURE [None]
